FAERS Safety Report 5052485-8 (Version None)
Quarter: 2006Q3

REPORT INFORMATION
  Report Type: 
  Country: None (occurrence: None)
  Receive Date: 20060712
  Receipt Date: 20060712
  Transmission Date: 20061208
  Serious: Yes (Disabling)
  Sender: FDA-Public Use
  Company Number: None

PATIENT
  Sex: Male

DRUGS (1)
  1. ARICEPT [Suspect]
     Indication: DEMENTIA
     Dosage: 5MG  DAILY  PO
     Route: 048
     Dates: start: 20050301, end: 20060518

REACTIONS (4)
  - ASTHENIA [None]
  - ATRIOVENTRICULAR BLOCK [None]
  - CORONARY ARTERY DISEASE [None]
  - SINUS BRADYCARDIA [None]
